FAERS Safety Report 8833897 (Version 1)
Quarter: 2012Q4

REPORT INFORMATION
  Report Type: Spontaneous
  Country: US (occurrence: None)
  Receive Date: 20121010
  Receipt Date: 20121010
  Transmission Date: 20130627
  Serious: Yes (Disabling)
  Sender: FDA-Public Use
  Company Number: None

PATIENT
  Age: 35 Year
  Sex: Female
  Weight: 104.33 kg

DRUGS (1)
  1. MIRENA IUD [Suspect]
     Dosage: Endocervical
     Route: 005
     Dates: start: 20071004, end: 20110823

REACTIONS (2)
  - Anovulatory cycle [None]
  - Infertility female [None]
